FAERS Safety Report 15310935 (Version 2)
Quarter: 2018Q3

REPORT INFORMATION
  Report Type: Spontaneous
  Country: US (occurrence: US)
  Receive Date: 20180823
  Receipt Date: 20180912
  Transmission Date: 20181010
  Serious: No
  Sender: FDA-Public Use
  Company Number: US-009507513-1808USA000945

PATIENT
  Sex: Female

DRUGS (1)
  1. PROVENTIL [Suspect]
     Active Substance: ALBUTEROL
     Indication: ASTHMA
     Dosage: UNK
     Route: 055
     Dates: start: 2018

REACTIONS (6)
  - Cough [Not Recovered/Not Resolved]
  - Fear [Not Recovered/Not Resolved]
  - Abdominal discomfort [Not Recovered/Not Resolved]
  - Product quality issue [Not Recovered/Not Resolved]
  - Product quality issue [Not Recovered/Not Resolved]
  - Drug effect delayed [Not Recovered/Not Resolved]

NARRATIVE: CASE EVENT DATE: 2018
